FAERS Safety Report 4529917-4 (Version None)
Quarter: 2004Q4

REPORT INFORMATION
  Report Type: 
  Country: None (occurrence: None)
  Receive Date: 20041214
  Receipt Date: 20041206
  Transmission Date: 20050328
  Serious: Yes (Life-Threatening)
  Sender: FDA-Public Use
  Company Number: 2004103088

PATIENT
  Age: 16 Year
  Sex: Male
  Weight: 70.3 kg

DRUGS (2)
  1. GENOTROPIN [Suspect]
     Indication: HYPOPITUITARISM
     Dosage: (21.6 MGS PER WEEK), SUBCUTANEOUS
     Route: 058
     Dates: start: 19970414, end: 20041019
  2. LEVOTHYROXINE SODIUM [Concomitant]

REACTIONS (1)
  - NEOPLASM PROGRESSION [None]
